FAERS Safety Report 7422737-2 (Version None)
Quarter: 2011Q2

REPORT INFORMATION
  Report Type: 
  Country: None (occurrence: None)
  Receive Date: 20110419
  Receipt Date: 20110407
  Transmission Date: 20111010
  Serious: Yes (Hospitalization)
  Sender: FDA-Public Use
  Company Number: FR-JNJFOC-20110404885

PATIENT
  Age: 40 Year
  Sex: Female

DRUGS (2)
  1. STELARA [Suspect]
     Indication: SYSTEMIC LUPUS ERYTHEMATOSUS
     Route: 058
  2. STELARA [Suspect]
     Indication: ACUTE FEBRILE NEUTROPHILIC DERMATOSIS
     Route: 058

REACTIONS (3)
  - OFF LABEL USE [None]
  - HERPES ZOSTER [None]
  - THERAPEUTIC RESPONSE UNEXPECTED [None]
